FAERS Safety Report 9668057 (Version 3)
Quarter: 2014Q2

REPORT INFORMATION
  Report Type: Report from Study
  Country: JP (occurrence: JP)
  Receive Date: 20131104
  Receipt Date: 20140529
  Transmission Date: 20141212
  Serious: Yes (Hospitalization)
  Sender: FDA-Public Use
  Company Number: JP-AMGEN-JPNCT2013077404

PATIENT
  Age: 79 Year
  Sex: Male
  Weight: 56 kg

DRUGS (9)
  1. ROMIPLOSTIM - KHK [Suspect]
     Indication: IMMUNE THROMBOCYTOPENIC PURPURA
     Dosage: 1 MG/KG, QD
     Route: 058
     Dates: start: 20121121, end: 20130123
  2. PREDONINE                          /00016201/ [Concomitant]
     Indication: IMMUNE THROMBOCYTOPENIC PURPURA
     Dosage: 60 MG, UNK
     Route: 065
     Dates: start: 20121122, end: 20121231
  3. PREDNISOLONE [Concomitant]
     Indication: IMMUNE THROMBOCYTOPENIC PURPURA
     Dosage: 60 MG, UNK
     Route: 048
     Dates: start: 20121124, end: 20130112
  4. PREDNISOLONE [Concomitant]
     Indication: IMMUNE THROMBOCYTOPENIC PURPURA
  5. TAMSULOSIN HYDROCHLORIDE [Concomitant]
     Indication: BENIGN PROSTATIC HYPERPLASIA
     Dosage: UNK
     Route: 048
  6. MAGMITT [Concomitant]
     Indication: PROPHYLAXIS
     Dosage: UNK
     Route: 048
  7. PARIET [Concomitant]
     Indication: PROPHYLAXIS
     Dosage: UNK
     Route: 048
  8. ADONA                              /00056903/ [Concomitant]
     Indication: PROPHYLAXIS
     Dosage: UNK
     Route: 048
  9. URIEF [Concomitant]
     Indication: BENIGN PROSTATIC HYPERPLASIA
     Dosage: UNK
     Route: 048

REACTIONS (2)
  - Pneumocystis jirovecii pneumonia [Recovered/Resolved]
  - Neutrophil count increased [Recovered/Resolved]
